FAERS Safety Report 10192592 (Version 1)
Quarter: 2014Q2

REPORT INFORMATION
  Report Type: Spontaneous
  Country: FR (occurrence: FR)
  Receive Date: 20140523
  Receipt Date: 20140523
  Transmission Date: 20141212
  Serious: Yes (Other)
  Sender: FDA-Public Use
  Company Number: FR-PFIZER INC-2014143389

PATIENT
  Age: 57 Year
  Sex: Male

DRUGS (1)
  1. TAHOR [Suspect]
     Dosage: 80 MG, DAILY
     Route: 048
     Dates: start: 2010

REACTIONS (1)
  - Type 2 diabetes mellitus [Unknown]
